FAERS Safety Report 6187231-8 (Version None)
Quarter: 2009Q2

REPORT INFORMATION
  Report Type: 
  Country: None (occurrence: None)
  Receive Date: 20090512
  Receipt Date: 20090507
  Transmission Date: 20091009
  Serious: Yes (Death, Other)
  Sender: FDA-Public Use
  Company Number: JP-BAYER-200910986BYL

PATIENT
  Age: 43 Year
  Sex: Female
  Weight: 44 kg

DRUGS (11)
  1. FLUDARA [Suspect]
     Indication: ACUTE LYMPHOCYTIC LEUKAEMIA
     Dosage: AS USED: 25 MG/M2  UNIT DOSE: 50 MG
     Route: 042
     Dates: start: 20081205, end: 20081209
  2. ALKERAN [Concomitant]
     Indication: ACUTE LYMPHOCYTIC LEUKAEMIA
     Dosage: AS USED: 70 MG/M2
     Route: 042
     Dates: start: 20081205, end: 20081205
  3. ALKERAN [Concomitant]
     Dosage: AS USED: 70 MG/M2
     Route: 042
     Dates: start: 20081209, end: 20081209
  4. CYLOCIDE [Concomitant]
     Indication: ACUTE LYMPHOCYTIC LEUKAEMIA
     Dosage: AS USED: 28 MG
     Route: 037
     Dates: start: 20081205, end: 20081205
  5. PREDONINE INJ [Concomitant]
     Indication: ACUTE LYMPHOCYTIC LEUKAEMIA
     Dosage: AS USED: 15 MG
     Route: 037
     Dates: start: 20081205, end: 20081205
  6. METHOTREXATE [Concomitant]
     Dosage: AS USED: 14 MG
     Route: 041
     Dates: start: 20081213, end: 20081213
  7. METHOTREXATE [Concomitant]
     Dosage: AS USED: 9.5 MG
     Route: 041
     Dates: start: 20081218, end: 20081218
  8. METHOTREXATE [Concomitant]
     Dosage: AS USED: 9.5 MG
     Route: 041
     Dates: start: 20081215, end: 20081215
  9. CONCENTRATED RED CELLS [Concomitant]
     Indication: PACKED RED BLOOD CELL TRANSFUSION
     Route: 042
     Dates: start: 20081221, end: 20090322
  10. PLATELETS [Concomitant]
     Indication: PLATELET TRANSFUSION
     Route: 042
     Dates: start: 20081216, end: 20090321
  11. FRESH FROZEN PLASMA [Concomitant]
     Indication: BLOOD PRODUCT TRANSFUSION
     Route: 042
     Dates: start: 20090222, end: 20090321

REACTIONS (4)
  - ACUTE GRAFT VERSUS HOST DISEASE [None]
  - CYTOMEGALOVIRUS VIRAEMIA [None]
  - HEPATIC FAILURE [None]
  - SEPSIS [None]
